FAERS Safety Report 9638805 (Version 1)
Quarter: 2013Q4

REPORT INFORMATION
  Report Type: Spontaneous
  Country: US (occurrence: US)
  Receive Date: 20131022
  Receipt Date: 20131022
  Transmission Date: 20140711
  Serious: No
  Sender: FDA-Public Use
  Company Number: US-BRISTOL-MYERS SQUIBB COMPANY-19384312

PATIENT
  Age: 81 Year
  Sex: Female
  Weight: 66.21 kg

DRUGS (3)
  1. ELIQUIS [Suspect]
     Indication: HEART RATE IRREGULAR
     Dosage: 60TABS
  2. SOTALOL [Concomitant]
  3. PRILOSEC [Concomitant]

REACTIONS (1)
  - Gastric disorder [Recovered/Resolved]
